FAERS Safety Report 17202091 (Version 4)
Quarter: 2020Q1

REPORT INFORMATION
  Report Type: Spontaneous
  Country: PT (occurrence: PT)
  Receive Date: 20191226
  Receipt Date: 20200120
  Transmission Date: 20200409
  Serious: Yes (Hospitalization, Other)
  Sender: FDA-Public Use
  Company Number: PT-MYLANLABS-2019M1128078

PATIENT
  Age: 75 Year
  Sex: Female

DRUGS (7)
  1. CLOZAPINE. [Suspect]
     Active Substance: CLOZAPINE
     Indication: SCHIZOPHRENIA
     Dosage: UNK
  2. CYAMEMAZINE [Suspect]
     Active Substance: CYAMEMAZINE
     Indication: SCHIZOPHRENIA
     Dosage: UNK
  3. CLOZAPINE. [Suspect]
     Active Substance: CLOZAPINE
     Indication: SCHIZOPHRENIA
     Dosage: UNK
     Route: 065
  4. CLOZAPINE. [Suspect]
     Active Substance: CLOZAPINE
     Indication: SCHIZOPHRENIA
     Dosage: UNK
  5. LORAZEPAM. [Concomitant]
     Active Substance: LORAZEPAM
     Indication: SCHIZOPHRENIA
     Dosage: UNK
  6. CLOZAPINE. [Suspect]
     Active Substance: CLOZAPINE
     Indication: SCHIZOPHRENIA
     Dosage: UNK
  7. CYAMEMAZINE [Suspect]
     Active Substance: CYAMEMAZINE
     Dosage: UNK

REACTIONS (4)
  - Hypotension [Recovered/Resolved]
  - Depressed level of consciousness [Recovered/Resolved]
  - Colitis ischaemic [Recovered/Resolved]
  - Diarrhoea [Recovered/Resolved]
